FAERS Safety Report 10009972 (Version 2)
Quarter: 2014Q1

REPORT INFORMATION
  Report Type: Spontaneous
  Country: US (occurrence: US)
  Receive Date: 20140312
  Receipt Date: 20140312
  Transmission Date: 20141002
  Serious: No
  Sender: FDA-Public Use
  Company Number: US-INCYTE CORPORATION-2012IN002691

PATIENT
  Age: 62 Year
  Sex: Male

DRUGS (4)
  1. JAKAFI [Suspect]
     Indication: POLYCYTHAEMIA VERA
     Dosage: 5 MG, BID
     Route: 048
     Dates: start: 20121127
  2. JAKAFI [Suspect]
     Indication: CHRONIC LYMPHOCYTIC LEUKAEMIA
     Dosage: 10 MG, BID
     Route: 048
     Dates: end: 201302
  3. RITUXAN [Concomitant]
  4. BENDAMUSTINE [Concomitant]

REACTIONS (16)
  - Memory impairment [Unknown]
  - Photophobia [Unknown]
  - Fatigue [Unknown]
  - Dysstasia [Unknown]
  - Mental disorder [Unknown]
  - White blood cell count increased [Unknown]
  - Oropharyngeal pain [Unknown]
  - Cough [Unknown]
  - Pyrexia [Unknown]
  - Rhinorrhoea [Unknown]
  - Apathy [Recovering/Resolving]
  - Hypersomnia [Unknown]
  - Insomnia [Unknown]
  - Dizziness [Unknown]
  - Headache [Unknown]
  - Drug effect decreased [Unknown]
